FAERS Safety Report 7984161-3 (Version None)
Quarter: 2011Q4

REPORT INFORMATION
  Report Type: 
  Country: None (occurrence: None)
  Receive Date: 20111213
  Receipt Date: 20111128
  Transmission Date: 20120403
  Serious: Yes (Hospitalization)
  Sender: FDA-Public Use
  Company Number: FK201102850

PATIENT
  Age: 31 Year
  Sex: Female

DRUGS (1)
  1. IDARUBICIN HCL [Suspect]
     Indication: ACUTE PROMYELOCYTIC LEUKAEMIA

REACTIONS (6)
  - LOSS OF CONSCIOUSNESS [None]
  - HYPOTENSION [None]
  - POSTPARTUM HAEMORRHAGE [None]
  - UTERINE HAEMORRHAGE [None]
  - PLATELET COUNT DECREASED [None]
  - HAEMOGLOBIN DECREASED [None]
